FAERS Safety Report 24385077 (Version 3)
Quarter: 2025Q1

REPORT INFORMATION
  Report Type: Spontaneous
  Country: US (occurrence: US)
  Receive Date: 20241001
  Receipt Date: 20250212
  Transmission Date: 20250409
  Serious: Yes (Other)
  Sender: BOEHRINGER INGELHEIM
  Company Number: US-BoehringerIngelheim-2024-BI-054404

PATIENT
  Age: 55 Year
  Sex: Female

DRUGS (11)
  1. SYNJARDY XR [Suspect]
     Active Substance: EMPAGLIFLOZIN\METFORMIN HYDROCHLORIDE
     Indication: Glucose tolerance impaired
     Dosage: 12.5-1000MG
     Dates: start: 202405
  2. SYNJARDY XR [Suspect]
     Active Substance: EMPAGLIFLOZIN\METFORMIN HYDROCHLORIDE
     Dates: start: 202408
  3. FAMOTIDINE [Concomitant]
     Active Substance: FAMOTIDINE
     Indication: Product used for unknown indication
  4. Ondansetron (Zofran) injection 4mg [Concomitant]
     Indication: Product used for unknown indication
  5. Ondansetron (Zofran) injection 4mg [Concomitant]
  6. Pantoprazole (Protonix) injection 40mg [Concomitant]
     Indication: Product used for unknown indication
  7. SODIUM CHLORIDE [Concomitant]
     Active Substance: SODIUM CHLORIDE
     Indication: Product used for unknown indication
  8. Morphine injection 4mg [Concomitant]
     Indication: Product used for unknown indication
  9. IOPAMIDOL [Concomitant]
     Active Substance: IOPAMIDOL
     Indication: Imaging procedure
  10. Hydrocodone-Acetaminophen (Norco) 5-325mg [Concomitant]
     Indication: Pain
     Dosage: PRN (AS NEEDED)
     Dates: start: 20240928
  11. Ketorolac (Toradol) injection 15mg [Concomitant]
     Indication: Product used for unknown indication

REACTIONS (2)
  - Pancreatitis acute [Recovering/Resolving]
  - Intentional product use issue [Unknown]

NARRATIVE: CASE EVENT DATE: 20240928
